FAERS Safety Report 4827232-2 (Version None)
Quarter: 2005Q4

REPORT INFORMATION
  Report Type: 
  Country: None (occurrence: None)
  Receive Date: 20051014
  Receipt Date: 20050617
  Transmission Date: 20060501
  Serious: No
  Sender: FDA-Public Use
  Company Number: 2005SP001471

PATIENT
  Age: 54 Year
  Sex: Female
  Weight: 81.6475 kg

DRUGS (2)
  1. LUNESTA [Suspect]
     Dosage: 3 MG; 1X; ORAL; SEE IMAGE
     Route: 048
     Dates: start: 20050601, end: 20050601
  2. LUNESTA [Suspect]
     Dosage: 3 MG; 1X; ORAL; SEE IMAGE
     Route: 048
     Dates: start: 20050605, end: 20050605

REACTIONS (1)
  - DYSGEUSIA [None]
